FAERS Safety Report 4570548-8 (Version None)
Quarter: 2005Q1

REPORT INFORMATION
  Report Type: 
  Country: None (occurrence: None)
  Receive Date: 20050203
  Receipt Date: 20050203
  Transmission Date: 20050727
  Serious: Yes (Other)
  Sender: FDA-Public Use
  Company Number: None

PATIENT
  Sex: Female
  Weight: 68.0396 kg

DRUGS (3)
  1. HUMIRA [Suspect]
     Indication: ARTHRITIS
     Dosage: ONCE   2 WEEKS   SUBCUTANEOUS
     Route: 058
     Dates: start: 20040101, end: 20041231
  2. KINERET [Suspect]
     Indication: ARTHRITIS
     Dosage: DAILY/TWICE   WEEKLY   SUBCUTANEOUS
     Route: 058
     Dates: start: 20020101, end: 20041231
  3. ENBREL [Suspect]
     Indication: ARTHRITIS
     Dosage: TWICE WEEKLY
     Dates: start: 20020101, end: 20041231

REACTIONS (1)
  - BLADDER CANCER [None]
